FAERS Safety Report 7126515-3 (Version None)
Quarter: 2010Q4

REPORT INFORMATION
  Report Type: 
  Country: None (occurrence: None)
  Receive Date: 20101129
  Receipt Date: 20100914
  Transmission Date: 20110411
  Serious: No
  Sender: FDA-Public Use
  Company Number: US-MYLANLABS-2010S1017076

PATIENT
  Age: 70 Year
  Sex: Female
  Weight: 79.38 kg

DRUGS (4)
  1. LANSOPRAZOLE [Suspect]
     Indication: GASTROOESOPHAGEAL REFLUX DISEASE
     Route: 048
     Dates: start: 20100801
  2. BENAZEPRIL HYDROCHLORIDE AND HYDROCHLOROTHIAZIDE [Concomitant]
     Indication: BLOOD PRESSURE
  3. ZOLOFT [Concomitant]
     Indication: DEPRESSION
  4. DITROPAN [Concomitant]
     Indication: BLADDER DYSFUNCTION

REACTIONS (3)
  - DRUG INEFFECTIVE [None]
  - GASTROOESOPHAGEAL REFLUX DISEASE [None]
  - MEDICATION RESIDUE [None]
